FAERS Safety Report 6908849-8 (Version None)
Quarter: 2010Q3

REPORT INFORMATION
  Report Type: 
  Country: None (occurrence: None)
  Receive Date: 20100805
  Receipt Date: 20100728
  Transmission Date: 20110219
  Serious: Yes (Congenital Anomaly)
  Sender: FDA-Public Use
  Company Number: B0667378A

PATIENT
  Age: 2 Day
  Sex: Male
  Weight: 3.4 kg

DRUGS (3)
  1. LAMIVUDINE-HIV [Suspect]
     Indication: HIV INFECTION
     Dosage: 300MG PER DAY
     Route: 062
     Dates: start: 20100430, end: 20100706
  2. ZIDOVUDINE [Suspect]
     Indication: HIV INFECTION
     Dosage: 600MG PER DAY
     Route: 062
     Dates: start: 20100430, end: 20100706
  3. KALETRA [Suspect]
     Indication: HIV INFECTION
     Dosage: 10ML PER DAY
     Route: 062
     Dates: start: 20100430, end: 20100706

REACTIONS (1)
  - COARCTATION OF THE AORTA [None]
